FAERS Safety Report 7883504-9 (Version None)
Quarter: 2011Q4

REPORT INFORMATION
  Report Type: 
  Country: None (occurrence: None)
  Receive Date: 20111102
  Receipt Date: 20110809
  Transmission Date: 20120403
  Serious: No
  Sender: FDA-Public Use
  Company Number: US-GLAXOSMITHKLINE-A0940238A

PATIENT
  Age: 72 Year
  Sex: Female

DRUGS (2)
  1. RYTHMOL SR [Suspect]
     Indication: ATRIAL FIBRILLATION
     Dosage: 225MG TWICE PER DAY
     Route: 048
     Dates: start: 20081201
  2. NEXIUM [Concomitant]

REACTIONS (2)
  - EXTRASYSTOLES [None]
  - PRODUCT QUALITY ISSUE [None]
